FAERS Safety Report 9388865 (Version 4)
Quarter: 2013Q3

REPORT INFORMATION
  Report Type: Spontaneous
  Country: JP (occurrence: JP)
  Receive Date: 20130708
  Receipt Date: 20130826
  Transmission Date: 20140515
  Serious: Yes (Life-Threatening, Other)
  Sender: FDA-Public Use
  Company Number: JP-PFIZER INC-2013104454

PATIENT
  Age: 39 Year
  Sex: Female
  Weight: 103 kg

DRUGS (1)
  1. ZYVOX [Suspect]
     Indication: CATHETER SITE INFLAMMATION
     Dosage: 600 MG, DAILY
     Route: 041
     Dates: start: 20130314, end: 20130314

REACTIONS (1)
  - Anaphylactic shock [Recovered/Resolved]
